FAERS Safety Report 6518847-4 (Version None)
Quarter: 2009Q4

REPORT INFORMATION
  Report Type: 
  Country: None (occurrence: None)
  Receive Date: 20091218
  Receipt Date: 20091203
  Transmission Date: 20100525
  Serious: Yes (Death, Hospitalization)
  Sender: FDA-Public Use
  Company Number: WAES 0507CHN00024

PATIENT
  Age: 69 Year
  Sex: Male

DRUGS (7)
  1. COZAAR [Suspect]
     Indication: CARDIAC FAILURE
     Dosage: 150 MG/DAILY PO
     Route: 048
     Dates: start: 20040403, end: 20040420
  2. COZAAR [Suspect]
     Indication: CARDIAC FAILURE
     Dosage: 150 MG/DAILY PO
     Route: 048
     Dates: start: 20040421, end: 20050726
  3. METOPROLOL TARTRATE [Concomitant]
  4. ASPIRIN [Concomitant]
  5. DIGOXIN [Concomitant]
  6. GLIPIZIDE [Concomitant]
  7. SPIRONOLACTONE [Concomitant]

REACTIONS (12)
  - BLOOD CHLORIDE DECREASED [None]
  - BLOOD POTASSIUM INCREASED [None]
  - BLOOD PRESSURE DECREASED [None]
  - BLOOD SODIUM DECREASED [None]
  - CARDIAC ARREST [None]
  - COMA [None]
  - DECREASED APPETITE [None]
  - DYSCHEZIA [None]
  - ELECTROLYTE IMBALANCE [None]
  - HYPOVOLAEMIC SHOCK [None]
  - METABOLIC ACIDOSIS [None]
  - RENAL FAILURE ACUTE [None]
